FAERS Safety Report 13123110 (Version 2)
Quarter: 2017Q1

REPORT INFORMATION
  Report Type: Spontaneous
  Country: BR (occurrence: BR)
  Receive Date: 20170117
  Receipt Date: 20170126
  Transmission Date: 20170428
  Serious: Yes (Other)
  Sender: FDA-Public Use
  Company Number: BR-ALEXION PHARMACEUTICALS INC.-A201700276

PATIENT
  Age: 23 Year
  Sex: Female
  Weight: 83 kg

DRUGS (2)
  1. SOLIRIS [Suspect]
     Active Substance: ECULIZUMAB
     Indication: HAEMOLYTIC URAEMIC SYNDROME
     Dosage: 900 MG, UNK
     Route: 042
     Dates: start: 20170110, end: 20170110
  2. BUSCOPAN COMPOSITUM                /00005101/ [Concomitant]
     Indication: PRODUCT USED FOR UNKNOWN INDICATION
     Route: 065

REACTIONS (6)
  - Headache [Recovered/Resolved]
  - Hypersensitivity [Recovered/Resolved]
  - Eye oedema [Recovered/Resolved]
  - Tachycardia [Recovered/Resolved]
  - Thrombotic thrombocytopenic purpura [Recovered/Resolved]
  - ADAMTS13 activity abnormal [Unknown]

NARRATIVE: CASE EVENT DATE: 20170110
